FAERS Safety Report 9720037 (Version 3)
Quarter: 2013Q4

REPORT INFORMATION
  Report Type: Report from Study
  Country: CH (occurrence: CH)
  Receive Date: 20131128
  Receipt Date: 20131212
  Transmission Date: 20140711
  Serious: Yes (Hospitalization)
  Sender: FDA-Public Use
  Company Number: CH-BRISTOL-MYERS SQUIBB COMPANY-19853449

PATIENT
  Age: 73 Year
  Sex: Male

DRUGS (6)
  1. CETUXIMAB [Suspect]
     Indication: OESOPHAGEAL CARCINOMA
     Dosage: INF
     Route: 042
     Dates: start: 20131104, end: 20131104
  2. CISPLATIN [Suspect]
     Indication: OESOPHAGEAL CARCINOMA
     Dosage: INF
     Route: 042
     Dates: start: 20131104
  3. DOCETAXEL [Suspect]
     Indication: OESOPHAGEAL CARCINOMA
     Dosage: INF
     Route: 042
     Dates: start: 20131104
  4. PANTOZOL [Concomitant]
     Route: 048
  5. VOTUM PLUS [Concomitant]
     Route: 048
     Dates: end: 20131112
  6. TAMSULOSIN [Concomitant]
     Route: 048

REACTIONS (1)
  - Agranulocytosis [Recovered/Resolved]
